FAERS Safety Report 4717299-4 (Version None)
Quarter: 2005Q3

REPORT INFORMATION
  Report Type: 
  Country: None (occurrence: None)
  Receive Date: 20050719
  Receipt Date: 20050708
  Transmission Date: 20060218
  Serious: Yes (Other)
  Sender: FDA-Public Use
  Company Number: PHEH2005US07617

PATIENT
  Age: 59 Year
  Sex: Male

DRUGS (1)
  1. AREDIA [Suspect]
     Indication: MULTIPLE MYELOMA
     Dates: start: 20040501

REACTIONS (8)
  - ASEPTIC NECROSIS BONE [None]
  - BONE DISORDER [None]
  - ENDODONTIC PROCEDURE [None]
  - ERYTHEMA [None]
  - OEDEMA MOUTH [None]
  - ORAL PAIN [None]
  - ORAL SOFT TISSUE DISORDER [None]
  - SWELLING [None]
